FAERS Safety Report 24068963 (Version 3)
Quarter: 2024Q3

REPORT INFORMATION
  Report Type: Spontaneous
  Country: IN (occurrence: IN)
  Receive Date: 20240710
  Receipt Date: 20240710
  Transmission Date: 20241016
  Serious: No
  Sender: ROCHE
  Company Number: IN-ROCHE-3524145

PATIENT
  Age: 59 Year
  Sex: Male

DRUGS (3)
  1. VABYSMO [Suspect]
     Active Substance: FARICIMAB\FARICIMAB-SVOA
     Indication: Choroidal neovascularisation
     Dosage: LEFT EYE, SECOND INFUSION START DATE: 28/FEB/2024
     Route: 050
     Dates: start: 20240117
  2. VABYSMO [Suspect]
     Active Substance: FARICIMAB\FARICIMAB-SVOA
     Indication: Age-related macular degeneration
     Dosage: RIGHT EYE, SECOND INFUSION START DATE: 29/FEB/2024
     Route: 050
     Dates: start: 20240125
  3. VABYSMO [Suspect]
     Active Substance: FARICIMAB\FARICIMAB-SVOA
     Dosage: NEXT INFUSION DATE FOR LEFT EYE IS ON 23/APR/2024
     Route: 050
     Dates: start: 20240322

REACTIONS (2)
  - Off label use [Unknown]
  - No adverse event [Unknown]
